FAERS Safety Report 5843063-9 (Version None)
Quarter: 2008Q3

REPORT INFORMATION
  Report Type: 
  Country: None (occurrence: None)
  Receive Date: 20080811
  Receipt Date: 20070720
  Transmission Date: 20090109
  Serious: Yes (Hospitalization, Other)
  Sender: FDA-Public Use
  Company Number: JPI-P-001723

PATIENT
  Age: 38 Year
  Sex: Female

DRUGS (4)
  1. XYREM [Suspect]
     Indication: CATAPLEXY
     Dosage: 4.5 GM (2.25 MG, 2 IN 1 D) ORAL; 1 GM (1 GM, 1 IN 1 D), ORAL
     Route: 048
     Dates: start: 20070529, end: 20070702
  2. MODAFINIL (MODAFINIL) [Concomitant]
  3. TOPIRAMATE [Concomitant]
  4. CLOMIPRAMINE HCL [Concomitant]

REACTIONS (11)
  - CONDITION AGGRAVATED [None]
  - CONFUSIONAL STATE [None]
  - DISORIENTATION [None]
  - EPILEPSY [None]
  - HEADACHE [None]
  - INSOMNIA [None]
  - LOSS OF CONSCIOUSNESS [None]
  - MALAISE [None]
  - NAUSEA [None]
  - RETROGRADE AMNESIA [None]
  - VOMITING [None]
